FAERS Safety Report 23821652 (Version 1)
Quarter: 2024Q2

REPORT INFORMATION
  Report Type: Spontaneous
  Country: CZ (occurrence: CZ)
  Receive Date: 20240506
  Receipt Date: 20240506
  Transmission Date: 20240716
  Serious: Yes (Hospitalization)
  Sender: FDA-Public Use
  Company Number: None

PATIENT
  Age: 9 Year
  Sex: Female
  Weight: 32 kg

DRUGS (2)
  1. CLARITHROMYCIN [Suspect]
     Active Substance: CLARITHROMYCIN
     Indication: Pertussis
     Dosage: 4.5 MILLILITER
     Route: 048
     Dates: start: 20240325, end: 20240408
  2. POLYETHYLENE GLYCOL 4000 [Concomitant]
     Active Substance: POLYETHYLENE GLYCOL 4000
     Indication: Constipation
     Dosage: 10 GRAM, QD, 1 SACK A DAY
     Route: 048
     Dates: start: 202401

REACTIONS (5)
  - Reflux laryngitis [Unknown]
  - Ageusia [Recovering/Resolving]
  - Abdominal pain [Recovered/Resolved]
  - Anosmia [Recovered/Resolved]
  - Vomiting [Recovered/Resolved]

NARRATIVE: CASE EVENT DATE: 20240325
